FAERS Safety Report 7281581-X (Version None)
Quarter: 2011Q1

REPORT INFORMATION
  Report Type: 
  Country: None (occurrence: None)
  Receive Date: 20110208
  Receipt Date: 20110128
  Transmission Date: 20110831
  Serious: Yes (Disabling, Other)
  Sender: FDA-Public Use
  Company Number: PHHY2011US07177

PATIENT
  Sex: Male

DRUGS (5)
  1. DECADRON [Suspect]
     Indication: MULTIPLE MYELOMA
     Dosage: 40 MG, QW
     Dates: start: 20040101
  2. ZOMETA [Suspect]
     Indication: MULTIPLE MYELOMA
     Dosage: 4 MG, QMO
     Route: 042
     Dates: start: 20080501, end: 20090801
  3. REVLIMID [Suspect]
     Indication: MULTIPLE MYELOMA
     Dosage: 25 MG, 21 DAYS IN  MONTH
     Route: 048
     Dates: start: 20090801, end: 20100301
  4. CYTOXAN [Concomitant]
     Indication: MULTIPLE MYELOMA
     Dosage: 300 MG, (PER WEEK X 3 WEEKS)
     Route: 048
     Dates: start: 20100501
  5. DECADRON [Suspect]
     Dosage: 40 MG, QW
     Dates: start: 20080101

REACTIONS (1)
  - OSTEONECROSIS OF JAW [None]
